FAERS Safety Report 15121639 (Version 1)
Quarter: 2018Q3

REPORT INFORMATION
  Report Type: Spontaneous
  Country: IN (occurrence: US)
  Receive Date: 20180709
  Receipt Date: 20180709
  Transmission Date: 20181010
  Serious: Yes (Other)
  Sender: FDA-Public Use
  Company Number: IN-DEPOMED, INC.-US-2018DEP001346

PATIENT
  Age: 61 Year
  Sex: Male

DRUGS (1)
  1. DICLOFENAC POTASSIUM. [Suspect]
     Active Substance: DICLOFENAC POTASSIUM
     Indication: DIABETIC RETINAL OEDEMA
     Dosage: 450 MG/0.03 ML

REACTIONS (2)
  - Retinal toxicity [Recovered/Resolved]
  - Cystoid macular oedema [Recovered/Resolved]
